FAERS Safety Report 6466338-1 (Version None)
Quarter: 2009Q4

REPORT INFORMATION
  Report Type: 
  Country: None (occurrence: None)
  Receive Date: 20091201
  Receipt Date: 20091201
  Transmission Date: 20100525
  Serious: Yes (Hospitalization)
  Sender: FDA-Public Use
  Company Number: None

PATIENT
  Age: 21 Year
  Sex: Female

DRUGS (2)
  1. TRAZODONE HCL [Suspect]
     Indication: INSOMNIA
     Dosage: 75 MG AT BEDTIME PO
     Route: 048
     Dates: start: 20090824, end: 20090830
  2. CLONAZEPAM [Suspect]
     Indication: INSOMNIA
     Dosage: 2 MG STAT PO
     Route: 048
     Dates: start: 20090825, end: 20090825

REACTIONS (10)
  - ARRHYTHMIA [None]
  - BLOOD UREA DECREASED [None]
  - DRUG SCREEN POSITIVE [None]
  - FALL [None]
  - FEELING ABNORMAL [None]
  - HIGH DENSITY LIPOPROTEIN DECREASED [None]
  - PROTEIN TOTAL DECREASED [None]
  - RED BLOOD CELL COUNT DECREASED [None]
  - SYNCOPE [None]
  - TROPONIN INCREASED [None]
